FAERS Safety Report 8276693-8 (Version None)
Quarter: 2012Q2

REPORT INFORMATION
  Report Type: 
  Country: None (occurrence: None)
  Receive Date: 20120412
  Receipt Date: 20120412
  Transmission Date: 20120825
  Serious: Yes (Other)
  Sender: FDA-Public Use
  Company Number: None

PATIENT
  Age: 34 Year
  Sex: Female
  Weight: 149.23 kg

DRUGS (2)
  1. LAMOTRIGINE [Suspect]
     Indication: BIPOLAR DISORDER
     Dosage: 25 MG
     Route: 048
     Dates: start: 20120406, end: 20120411
  2. LAMOTRIGINE [Suspect]
     Indication: IRRITABILITY
     Dosage: 25 MG
     Route: 048
     Dates: start: 20120406, end: 20120411

REACTIONS (1)
  - HALLUCINATION, AUDITORY [None]
